FAERS Safety Report 4773223-X (Version None)
Quarter: 2005Q3

REPORT INFORMATION
  Report Type: 
  Country: None (occurrence: None)
  Receive Date: 20050919
  Receipt Date: 20050610
  Transmission Date: 20060218
  Serious: Yes (Hospitalization)
  Sender: FDA-Public Use
  Company Number: US-MERCK-0506USA01854

PATIENT
  Age: 53 Year
  Sex: Male
  Weight: 73 kg

DRUGS (8)
  1. VIOXX [Suspect]
     Indication: RHEUMATOID ARTHRITIS
     Route: 048
     Dates: start: 20040601, end: 20040901
  2. ACETAMINOPHEN AND PROPOXYPHENE NAPSYLATE [Concomitant]
     Route: 065
     Dates: start: 19900101
  3. ELAVIL [Concomitant]
     Route: 065
     Dates: start: 20030401, end: 20050401
  4. CYCLOBENZAPRINE HYDROCHLORIDE [Concomitant]
     Route: 065
  5. PIROXICAM MSD [Concomitant]
     Route: 065
     Dates: start: 20040501, end: 20040701
  6. TIZANIDINE HYDROCHLORIDE [Concomitant]
     Route: 065
  7. PAXIL [Concomitant]
     Route: 065
     Dates: start: 20030601, end: 20041001
  8. NAPROXEN [Concomitant]
     Route: 065
     Dates: start: 20031101, end: 20040601

REACTIONS (17)
  - BACK PAIN [None]
  - BLOOD CHOLESTEROL INCREASED [None]
  - CAROTID ARTERY ATHEROMA [None]
  - CAROTID ARTERY OCCLUSION [None]
  - CAROTID ARTERY STENOSIS [None]
  - CARPAL TUNNEL SYNDROME [None]
  - CEREBRAL ATHEROSCLEROSIS [None]
  - CEREBROVASCULAR ACCIDENT [None]
  - DEPRESSION [None]
  - DIASTOLIC DYSFUNCTION [None]
  - HYPERCHOLESTEROLAEMIA [None]
  - HYPERTENSION [None]
  - INTERVERTEBRAL DISC DEGENERATION [None]
  - LOW DENSITY LIPOPROTEIN INCREASED [None]
  - MUSCLE SPASMS [None]
  - NECK PAIN [None]
  - TRANSIENT ISCHAEMIC ATTACK [None]
